FAERS Safety Report 5230922-3 (Version None)
Quarter: 2007Q1

REPORT INFORMATION
  Report Type: 
  Country: None (occurrence: None)
  Receive Date: 20070206
  Receipt Date: 20070131
  Transmission Date: 20070707
  Serious: Yes (Other)
  Sender: FDA-Public Use
  Company Number: GB-GLAXOSMITHKLINE-B0360164A

PATIENT
  Sex: Female

DRUGS (3)
  1. PAROXETINE HYDROCHLORIDE [Suspect]
     Dosage: 20MG VARIABLE DOSE
     Route: 065
     Dates: end: 20030501
  2. ZIMOVANE [Concomitant]
  3. INDERAL [Concomitant]
     Route: 065

REACTIONS (7)
  - CONDITION AGGRAVATED [None]
  - DEPRESSED MOOD [None]
  - DRUG WITHDRAWAL SYNDROME [None]
  - DRY MOUTH [None]
  - FEELINGS OF WORTHLESSNESS [None]
  - OVERDOSE [None]
  - SUICIDAL IDEATION [None]
